FAERS Safety Report 13163281 (Version 1)
Quarter: 2017Q1

REPORT INFORMATION
  Report Type: Spontaneous
  Country: US (occurrence: US)
  Receive Date: 20170129
  Receipt Date: 20170129
  Transmission Date: 20170428
  Serious: No
  Sender: FDA-Public Use
  Company Number: None

PATIENT
  Age: 53 Year
  Sex: Female
  Weight: 83.25 kg

DRUGS (11)
  1. CLONOPRIN [Concomitant]
  2. RANITIDINE. [Concomitant]
     Active Substance: RANITIDINE
  3. TEMAZEPAM. [Concomitant]
     Active Substance: TEMAZEPAM
  4. VITAMIN C [Concomitant]
     Active Substance: ASCORBIC ACID
  5. PROZAC [Concomitant]
     Active Substance: FLUOXETINE HYDROCHLORIDE
  6. PREVACID [Concomitant]
     Active Substance: LANSOPRAZOLE
  7. OIL OF OREGANO [Concomitant]
  8. PRAZOSIN [Concomitant]
     Active Substance: PRAZOSIN
  9. AMITRIPYLINE 25 MG [Suspect]
     Active Substance: AMITRIPTYLINE
     Indication: MUSCLE SPASMS
     Dosage: ?          QUANTITY:3 TABLET(S);?
     Route: 048
     Dates: start: 20151015
  10. PROBIOTICS [Concomitant]
     Active Substance: PROBIOTICS NOS
  11. AQUADEKS [Concomitant]
     Active Substance: MINERALS\VITAMINS

REACTIONS (2)
  - Product substitution issue [None]
  - Drug ineffective [None]

NARRATIVE: CASE EVENT DATE: 20170116
